FAERS Safety Report 24579954 (Version 4)
Quarter: 2025Q4

REPORT INFORMATION
  Report Type: Report from Study
  Country: GB (occurrence: GB)
  Receive Date: 20241105
  Receipt Date: 20251208
  Transmission Date: 20260118
  Serious: Yes (Hospitalization, Other)
  Sender: SANOFI AVENTIS
  Company Number: GB-SA-SAC20230403000026

PATIENT
  Age: 75 Year
  Sex: Male
  Weight: 85 kg

DRUGS (153)
  1. ISATUXIMAB [Suspect]
     Active Substance: ISATUXIMAB
     Indication: Plasma cell myeloma refractory
     Dosage: 800 MG, QW
     Route: 065
     Dates: start: 20221012, end: 20221115
  2. ISATUXIMAB [Suspect]
     Active Substance: ISATUXIMAB
     Dosage: 800 MG, QW
     Route: 065
     Dates: start: 20221019, end: 20221019
  3. ISATUXIMAB [Suspect]
     Active Substance: ISATUXIMAB
     Dosage: 800 MG, QW
     Route: 065
     Dates: start: 20221026, end: 20221026
  4. ISATUXIMAB [Suspect]
     Active Substance: ISATUXIMAB
     Dosage: 800 MG, QW
     Route: 065
     Dates: start: 20221102, end: 20221102
  5. ISATUXIMAB [Suspect]
     Active Substance: ISATUXIMAB
     Dosage: 800 MG, BIW
     Route: 065
     Dates: start: 20221115, end: 20221212
  6. ISATUXIMAB [Suspect]
     Active Substance: ISATUXIMAB
     Dosage: 800 MG, BIW
     Dates: start: 20230109, end: 20230206
  7. ISATUXIMAB [Suspect]
     Active Substance: ISATUXIMAB
     Dosage: 800 MG, BIW
     Route: 065
     Dates: start: 20221227, end: 20221227
  8. ISATUXIMAB [Suspect]
     Active Substance: ISATUXIMAB
     Dosage: 800 MG, BIW
     Route: 065
     Dates: start: 20221213, end: 20230109
  9. ISATUXIMAB [Suspect]
     Active Substance: ISATUXIMAB
     Dosage: 800 MG, BIW
     Dates: start: 20230206, end: 20230306
  10. ISATUXIMAB [Suspect]
     Active Substance: ISATUXIMAB
     Dosage: 800 MG, BIW
     Dates: start: 20230306, end: 20230412
  11. ISATUXIMAB [Suspect]
     Active Substance: ISATUXIMAB
     Dosage: 800 MG, BIW
     Dates: start: 20230320, end: 20230320
  12. ISATUXIMAB [Suspect]
     Active Substance: ISATUXIMAB
     Dosage: 800 MG, BIW
     Dates: start: 20230412, end: 20230505
  13. ISATUXIMAB [Suspect]
     Active Substance: ISATUXIMAB
     Dosage: 800 MG, BIW
     Dates: start: 20230524, end: 20230621
  14. ISATUXIMAB [Suspect]
     Active Substance: ISATUXIMAB
     Dosage: 800 MG, 1X
     Dates: start: 20230607, end: 20230607
  15. ISATUXIMAB [Suspect]
     Active Substance: ISATUXIMAB
     Dosage: 800 MG, BIW
     Dates: start: 20230621, end: 20230726
  16. ISATUXIMAB [Suspect]
     Active Substance: ISATUXIMAB
     Dosage: 800 MG, BIW
     Dates: start: 20230726, end: 20230809
  17. ISATUXIMAB [Suspect]
     Active Substance: ISATUXIMAB
     Dosage: 800 MG, QD
     Dates: start: 20230823, end: 20230823
  18. ISATUXIMAB [Suspect]
     Active Substance: ISATUXIMAB
     Dosage: 800 MG, BIW
     Dates: start: 20230906, end: 20230928
  19. ISATUXIMAB [Suspect]
     Active Substance: ISATUXIMAB
     Dosage: 800 MG, BIW
     Dates: start: 20230829, end: 20230906
  20. ISATUXIMAB [Suspect]
     Active Substance: ISATUXIMAB
     Dosage: 800 MG, BIW
     Dates: start: 20230809, end: 20230906
  21. ISATUXIMAB [Suspect]
     Active Substance: ISATUXIMAB
     Dosage: 800 MG, BIW
     Dates: start: 20230510, end: 20230523
  22. POMALIDOMIDE [Suspect]
     Active Substance: POMALIDOMIDE
     Indication: Plasma cell myeloma refractory
     Dosage: 3 MG
     Dates: start: 20221012, end: 20221102
  23. POMALIDOMIDE [Suspect]
     Active Substance: POMALIDOMIDE
     Dosage: 3 MG
     Dates: start: 20221115, end: 20221212
  24. POMALIDOMIDE [Suspect]
     Active Substance: POMALIDOMIDE
     Dosage: 2 MG
     Dates: start: 20221213, end: 20230108
  25. POMALIDOMIDE [Suspect]
     Active Substance: POMALIDOMIDE
     Dosage: 2 MG
     Dates: start: 20230109, end: 20230206
  26. POMALIDOMIDE [Suspect]
     Active Substance: POMALIDOMIDE
     Dosage: 2 MG
     Dates: start: 20230206, end: 20230306
  27. POMALIDOMIDE [Suspect]
     Active Substance: POMALIDOMIDE
     Dosage: 2 MG
     Dates: start: 20230306, end: 20230412
  28. POMALIDOMIDE [Suspect]
     Active Substance: POMALIDOMIDE
     Dosage: 2 MG, BIW
     Dates: start: 20230412, end: 20230505
  29. POMALIDOMIDE [Suspect]
     Active Substance: POMALIDOMIDE
     Dosage: 2 MG
     Dates: start: 20230524, end: 20230621
  30. POMALIDOMIDE [Suspect]
     Active Substance: POMALIDOMIDE
     Dosage: 2 MG, QD
     Dates: start: 20230712, end: 20230802
  31. POMALIDOMIDE [Suspect]
     Active Substance: POMALIDOMIDE
     Dosage: 2 MG, BIW
     Dates: start: 20221115, end: 20221213
  32. POMALIDOMIDE [Suspect]
     Active Substance: POMALIDOMIDE
     Dosage: 2 MG, BIW
     Dates: start: 20230906, end: 20230926
  33. POMALIDOMIDE [Suspect]
     Active Substance: POMALIDOMIDE
     Dosage: 2 MG, BIW
     Dates: start: 20230621, end: 20230727
  34. POMALIDOMIDE [Suspect]
     Active Substance: POMALIDOMIDE
     Dosage: 2 MG, BIW
     Dates: start: 20230726, end: 20230809
  35. DEXAMETHASONE [Suspect]
     Active Substance: DEXAMETHASONE
     Indication: Plasma cell myeloma refractory
     Dosage: 10 MG, QW
     Dates: start: 20221012, end: 20221115
  36. DEXAMETHASONE [Suspect]
     Active Substance: DEXAMETHASONE
     Dosage: 10 MG, QW
     Dates: start: 20221115, end: 20221212
  37. DEXAMETHASONE [Suspect]
     Active Substance: DEXAMETHASONE
     Dosage: 10 MG, TO TAKE ON DAY 22
     Dates: start: 20230103, end: 20230103
  38. DEXAMETHASONE [Suspect]
     Active Substance: DEXAMETHASONE
     Dosage: 10 MG, QD
     Dates: start: 20221220, end: 20221220
  39. DEXAMETHASONE [Suspect]
     Active Substance: DEXAMETHASONE
     Dosage: 10 MG, QD
     Dates: start: 20221122, end: 20221122
  40. DEXAMETHASONE [Suspect]
     Active Substance: DEXAMETHASONE
     Dosage: 10 MG, QW
     Dates: start: 20230109, end: 20230205
  41. DEXAMETHASONE [Suspect]
     Active Substance: DEXAMETHASONE
     Dosage: 20 MG, QD
     Dates: start: 20220116, end: 20220116
  42. DEXAMETHASONE [Suspect]
     Active Substance: DEXAMETHASONE
     Dosage: 10 MG, QW
     Dates: start: 20221227, end: 20221227
  43. DEXAMETHASONE [Suspect]
     Active Substance: DEXAMETHASONE
     Dosage: 10 MG, QD
     Dates: start: 20230116, end: 20230116
  44. DEXAMETHASONE [Suspect]
     Active Substance: DEXAMETHASONE
     Dosage: 10 MG (FREQUENCY: TAKE DAY 8)
     Dates: start: 20230213, end: 20230213
  45. DEXAMETHASONE [Suspect]
     Active Substance: DEXAMETHASONE
     Dosage: 10 MG, QW
     Dates: start: 20230206, end: 20230306
  46. DEXAMETHASONE [Suspect]
     Active Substance: DEXAMETHASONE
     Dosage: 10 MG, QD
     Dates: start: 20230320, end: 20230320
  47. DEXAMETHASONE [Suspect]
     Active Substance: DEXAMETHASONE
     Dosage: 10 MG, QD
     Dates: start: 20230327, end: 20230418
  48. DEXAMETHASONE [Suspect]
     Active Substance: DEXAMETHASONE
     Dosage: 10 MG, QW
     Dates: start: 20230306, end: 20230412
  49. DEXAMETHASONE [Suspect]
     Active Substance: DEXAMETHASONE
     Dosage: 10 MG, QD
     Dates: start: 20230313, end: 20230313
  50. DEXAMETHASONE [Suspect]
     Active Substance: DEXAMETHASONE
     Dosage: 10 MG, QD
     Dates: start: 20230412, end: 20230524
  51. DEXAMETHASONE [Suspect]
     Active Substance: DEXAMETHASONE
     Dosage: 10 MG, QD
     Dates: start: 20230419, end: 20230419
  52. DEXAMETHASONE [Suspect]
     Active Substance: DEXAMETHASONE
     Dosage: 10 MG, QW
     Dates: start: 20230524, end: 20230621
  53. DEXAMETHASONE [Suspect]
     Active Substance: DEXAMETHASONE
     Dosage: 10 MG, 1X
     Dates: start: 20230614, end: 20230614
  54. DEXAMETHASONE [Suspect]
     Active Substance: DEXAMETHASONE
     Dosage: 10 MG, QW
     Dates: start: 20230621, end: 20230726
  55. DEXAMETHASONE [Suspect]
     Active Substance: DEXAMETHASONE
     Dosage: 10 MG, QW
     Dates: start: 20221115, end: 20221213
  56. DEXAMETHASONE [Suspect]
     Active Substance: DEXAMETHASONE
     Dosage: 10 MG, QW
     Dates: start: 20230109, end: 20230206
  57. DEXAMETHASONE [Suspect]
     Active Substance: DEXAMETHASONE
     Dosage: 10 MG, QW
     Dates: start: 20230906, end: 20230928
  58. DEXAMETHASONE [Suspect]
     Active Substance: DEXAMETHASONE
     Dosage: 10 MG, QW
     Dates: start: 20230726, end: 20230809
  59. DEXAMETHASONE [Suspect]
     Active Substance: DEXAMETHASONE
     Dosage: 2 MG, QW
     Dates: start: 20230809, end: 20230906
  60. DEXAMETHASONE [Suspect]
     Active Substance: DEXAMETHASONE
     Dosage: 10 MG, QD
     Dates: start: 20230510, end: 20230523
  61. RIVAROXABAN [Concomitant]
     Active Substance: RIVAROXABAN
     Indication: Plasma cell myeloma refractory
     Dosage: 10 MG, QD
     Dates: start: 20230412, end: 20230510
  62. RIVAROXABAN [Concomitant]
     Active Substance: RIVAROXABAN
     Dosage: 10 MG, QD
     Dates: start: 20230306, end: 20230403
  63. RIVAROXABAN [Concomitant]
     Active Substance: RIVAROXABAN
     Dosage: 10 MG
     Dates: start: 20230524, end: 20230621
  64. RIVAROXABAN [Concomitant]
     Active Substance: RIVAROXABAN
     Dosage: 10 MG
     Dates: start: 20230109, end: 20230206
  65. RIVAROXABAN [Concomitant]
     Active Substance: RIVAROXABAN
     Dosage: 10 MG
     Dates: start: 20230206, end: 20230306
  66. FILGRASTIM [Concomitant]
     Active Substance: FILGRASTIM
     Indication: Plasma cell myeloma refractory
     Dosage: UNK, QCY
     Dates: start: 20221107, end: 20221109
  67. FILGRASTIM [Concomitant]
     Active Substance: FILGRASTIM
     Dosage: 300 UG, BIW
     Dates: start: 20221115, end: 20221212
  68. FILGRASTIM [Concomitant]
     Active Substance: FILGRASTIM
     Dosage: 300 UG, BIW
     Dates: start: 20221213, end: 20230110
  69. FILGRASTIM [Concomitant]
     Active Substance: FILGRASTIM
     Dosage: 300 UG, QW
     Dates: start: 20221010, end: 20221109
  70. FILGRASTIM [Concomitant]
     Active Substance: FILGRASTIM
     Dosage: UNK, QCY
     Dates: start: 20221012, end: 20221109
  71. FILGRASTIM [Concomitant]
     Active Substance: FILGRASTIM
     Dosage: 300 UG, BIW
     Dates: start: 20230109, end: 20230109
  72. FILGRASTIM [Concomitant]
     Active Substance: FILGRASTIM
     Dosage: 300 MG
     Dates: start: 20230206, end: 20230305
  73. FILGRASTIM [Concomitant]
     Active Substance: FILGRASTIM
     Dosage: 300 MG/M2, BIW, QCY
     Dates: start: 20230306, end: 20230402
  74. FILGRASTIM [Concomitant]
     Active Substance: FILGRASTIM
     Dosage: 300 MG/M2, BIW
     Dates: start: 20230412, end: 20230523
  75. FILGRASTIM [Concomitant]
     Active Substance: FILGRASTIM
     Dosage: 300 MG, BIW
     Dates: start: 20230524
  76. FILGRASTIM [Concomitant]
     Active Substance: FILGRASTIM
     Dosage: 300 MG, BIW
     Dates: start: 20230621, end: 20230719
  77. FILGRASTIM [Concomitant]
     Active Substance: FILGRASTIM
     Dosage: 300 MG, BIW
     Dates: start: 20230726
  78. FILGRASTIM [Concomitant]
     Active Substance: FILGRASTIM
     Dosage: UNK
     Dates: start: 20230109, end: 20230205
  79. LANSOPRAZOLE [Concomitant]
     Active Substance: LANSOPRAZOLE
     Indication: Gastrointestinal disorder prophylaxis
     Dosage: UNK
     Dates: start: 2020
  80. LANSOPRAZOLE [Concomitant]
     Active Substance: LANSOPRAZOLE
     Dosage: UNK
     Dates: start: 2023
  81. BUMETANIDE [Concomitant]
     Active Substance: BUMETANIDE
     Indication: Cardiac failure
     Dosage: UNK
     Dates: start: 2020
  82. BUMETANIDE [Concomitant]
     Active Substance: BUMETANIDE
     Dosage: UNK
     Dates: start: 20221213, end: 20231212
  83. COTRIMOXAZOLE [Concomitant]
     Active Substance: SULFAMETHOXAZOLE\TRIMETHOPRIM
     Indication: Antifungal prophylaxis
     Dosage: UNK
     Dates: start: 2020
  84. COTRIMOXAZOLE [Concomitant]
     Active Substance: SULFAMETHOXAZOLE\TRIMETHOPRIM
     Dosage: 960 MG, MON/WED/FRI
     Dates: start: 20221115, end: 20221212
  85. COTRIMOXAZOLE [Concomitant]
     Active Substance: SULFAMETHOXAZOLE\TRIMETHOPRIM
     Dosage: 960 MG, MON/TUES/WED
     Dates: start: 20221012, end: 20221109
  86. COTRIMOXAZOLE [Concomitant]
     Active Substance: SULFAMETHOXAZOLE\TRIMETHOPRIM
     Dosage: UNK
     Dates: start: 20230418
  87. COTRIMOXAZOLE [Concomitant]
     Active Substance: SULFAMETHOXAZOLE\TRIMETHOPRIM
     Dosage: 960 MG, QD
     Dates: start: 20230306, end: 20230402
  88. COTRIMOXAZOLE [Concomitant]
     Active Substance: SULFAMETHOXAZOLE\TRIMETHOPRIM
     Dosage: 960 MG
     Dates: start: 20230412, end: 20230523
  89. COTRIMOXAZOLE [Concomitant]
     Active Substance: SULFAMETHOXAZOLE\TRIMETHOPRIM
     Dosage: 960 MG
     Dates: start: 20230412, end: 20230510
  90. COTRIMOXAZOLE [Concomitant]
     Active Substance: SULFAMETHOXAZOLE\TRIMETHOPRIM
     Dosage: 960 MG(MON/WED/FRI 28 DAYS)
     Dates: start: 20230524
  91. COTRIMOXAZOLE [Concomitant]
     Active Substance: SULFAMETHOXAZOLE\TRIMETHOPRIM
     Dosage: 960 MG (MON/WED/FRI)
     Dates: start: 20230621, end: 20230719
  92. COTRIMOXAZOLE [Concomitant]
     Active Substance: SULFAMETHOXAZOLE\TRIMETHOPRIM
     Dosage: 960 MG(MON/WED/FRI)
     Dates: start: 20230726
  93. COTRIMOXAZOLE [Concomitant]
     Active Substance: SULFAMETHOXAZOLE\TRIMETHOPRIM
     Dosage: UNK, QCY
     Dates: start: 20221213, end: 20221213
  94. COTRIMOXAZOLE [Concomitant]
     Active Substance: SULFAMETHOXAZOLE\TRIMETHOPRIM
     Dosage: UNK
     Dates: start: 20230206, end: 20230305
  95. COTRIMOXAZOLE [Concomitant]
     Active Substance: SULFAMETHOXAZOLE\TRIMETHOPRIM
     Dosage: UNK
     Dates: start: 20230109, end: 20230205
  96. ACYCLOVIR [Concomitant]
     Active Substance: ACYCLOVIR
     Indication: Antiviral prophylaxis
     Dosage: UNK
     Dates: start: 2020
  97. ALLOPURINOL [Concomitant]
     Active Substance: ALLOPURINOL
     Indication: Gout
     Dosage: UNK
     Dates: start: 2020
  98. SODIUM BICARBONATE [Concomitant]
     Active Substance: SODIUM BICARBONATE
     Indication: Chronic kidney disease
     Dosage: UNK
     Dates: start: 2020
  99. SODIUM BICARBONATE [Concomitant]
     Active Substance: SODIUM BICARBONATE
     Dosage: UNK
     Dates: start: 202304
  100. BISOPROLOL [Concomitant]
     Active Substance: BISOPROLOL
     Indication: Cardiac failure
     Dosage: UNK
     Dates: start: 2020
  101. CALCIUM CARBONATE\CHOLECALCIFEROL [Concomitant]
     Active Substance: CALCIUM CARBONATE\CHOLECALCIFEROL
     Indication: Bone disorder
     Dosage: UNK
     Dates: start: 2020
  102. PREGABALIN [Concomitant]
     Active Substance: PREGABALIN
     Indication: Osteoarthritis
     Dosage: UNK
     Dates: start: 2018
  103. PREGABALIN [Concomitant]
     Active Substance: PREGABALIN
     Dosage: UNK
     Dates: start: 2020
  104. TAMSULOSIN [Concomitant]
     Active Substance: TAMSULOSIN
     Indication: Benign prostatic hyperplasia
     Dosage: UNK
     Dates: start: 2020
  105. ISOSORBIDE MONONITRATE [Concomitant]
     Active Substance: ISOSORBIDE MONONITRATE
     Dosage: UNK
     Dates: start: 2020
  106. ISOSORBIDE MONONITRATE [Concomitant]
     Active Substance: ISOSORBIDE MONONITRATE
     Dosage: UNK
     Dates: start: 20221213, end: 20231212
  107. CHLORPHENIRAMINE MALEATE [Concomitant]
     Active Substance: CHLORPHENIRAMINE MALEATE
     Dosage: 4 MG, QD
     Dates: start: 20221213, end: 20221213
  108. CHLORPHENIRAMINE MALEATE [Concomitant]
     Active Substance: CHLORPHENIRAMINE MALEATE
     Dosage: 4 MG, QD
     Dates: start: 20221227, end: 20221227
  109. CHLORPHENIRAMINE MALEATE [Concomitant]
     Active Substance: CHLORPHENIRAMINE MALEATE
     Dosage: 4 MG, QD
     Dates: start: 20221115, end: 20221115
  110. CHLORPHENIRAMINE MALEATE [Concomitant]
     Active Substance: CHLORPHENIRAMINE MALEATE
     Dosage: 10 MG, QD
     Dates: start: 20221012, end: 20221012
  111. CHLORPHENIRAMINE MALEATE [Concomitant]
     Active Substance: CHLORPHENIRAMINE MALEATE
     Dosage: 4 MG, OTHER
     Dates: start: 20230109, end: 20230109
  112. CHLORPHENIRAMINE MALEATE [Concomitant]
     Active Substance: CHLORPHENIRAMINE MALEATE
     Dosage: 4 MG, QD
     Dates: start: 20230206, end: 20230206
  113. CHLORPHENIRAMINE MALEATE [Concomitant]
     Active Substance: CHLORPHENIRAMINE MALEATE
     Dosage: 4 MG, QD
     Dates: start: 20230320, end: 20230320
  114. CHLORPHENIRAMINE MALEATE [Concomitant]
     Active Substance: CHLORPHENIRAMINE MALEATE
     Dosage: 4 MG, QD
     Dates: start: 20230306, end: 20230306
  115. CHLORPHENIRAMINE MALEATE [Concomitant]
     Active Substance: CHLORPHENIRAMINE MALEATE
     Dosage: 4 MG, QD
     Dates: start: 20230412, end: 20230412
  116. CHLORPHENIRAMINE MALEATE [Concomitant]
     Active Substance: CHLORPHENIRAMINE MALEATE
     Dosage: 4 MG, 1X
     Dates: start: 20230524, end: 20230524
  117. CHLORPHENIRAMINE MALEATE [Concomitant]
     Active Substance: CHLORPHENIRAMINE MALEATE
     Dosage: 4 MG, 1X
     Dates: start: 20230607, end: 20230607
  118. CHLORPHENIRAMINE MALEATE [Concomitant]
     Active Substance: CHLORPHENIRAMINE MALEATE
     Dosage: 4 MG, 1X
     Dates: start: 20230726, end: 20230726
  119. CHLORPHENIRAMINE MALEATE [Concomitant]
     Active Substance: CHLORPHENIRAMINE MALEATE
     Dosage: UNK UNK, QCY
     Dates: start: 20230123, end: 20230123
  120. CHLORPHENIRAMINE MALEATE [Concomitant]
     Active Substance: CHLORPHENIRAMINE MALEATE
     Dosage: UNK UNK, QCY
     Dates: start: 20230220, end: 20230220
  121. CHLORPHENIRAMINE MALEATE [Concomitant]
     Active Substance: CHLORPHENIRAMINE MALEATE
     Dosage: UNK UNK, QCY
     Dates: start: 20230412, end: 20230412
  122. CHLORPHENIRAMINE MALEATE [Concomitant]
     Active Substance: CHLORPHENIRAMINE MALEATE
     Dosage: UNK UNK, QCY
     Dates: start: 20221102, end: 20221102
  123. CALCIUM\VITAMIN D [Concomitant]
     Active Substance: CALCIUM\VITAMIN D
     Indication: Supportive care
     Dosage: UNK
     Dates: start: 20221115, end: 20230206
  124. ACETAMINOPHEN [Concomitant]
     Active Substance: ACETAMINOPHEN
     Indication: Prophylaxis
     Dosage: 1000 MG, QD
     Dates: start: 20221213, end: 20221213
  125. ACETAMINOPHEN [Concomitant]
     Active Substance: ACETAMINOPHEN
     Dosage: 1000 MG, QD
     Dates: start: 20221227, end: 20221227
  126. ACETAMINOPHEN [Concomitant]
     Active Substance: ACETAMINOPHEN
     Dosage: 1000 MG, QD
     Dates: start: 20221115, end: 20221115
  127. ACETAMINOPHEN [Concomitant]
     Active Substance: ACETAMINOPHEN
     Dosage: 1000 MG, QD
     Dates: start: 20221012, end: 20221012
  128. ACETAMINOPHEN [Concomitant]
     Active Substance: ACETAMINOPHEN
     Dosage: 1000 MG, QD
     Dates: start: 20230109, end: 20230109
  129. ACETAMINOPHEN [Concomitant]
     Active Substance: ACETAMINOPHEN
     Dosage: UNK
     Dates: start: 2020
  130. ACETAMINOPHEN [Concomitant]
     Active Substance: ACETAMINOPHEN
     Dosage: 1000 MG, QD
     Dates: start: 20230206, end: 20230206
  131. ACETAMINOPHEN [Concomitant]
     Active Substance: ACETAMINOPHEN
     Dosage: 1000 MG, QD
     Dates: start: 20230320, end: 20230320
  132. ACETAMINOPHEN [Concomitant]
     Active Substance: ACETAMINOPHEN
     Dosage: 1000 MG, QD
     Dates: start: 20230306, end: 20230306
  133. ACETAMINOPHEN [Concomitant]
     Active Substance: ACETAMINOPHEN
     Dosage: 10 MG, QD
     Dates: start: 20230412, end: 20230412
  134. ACETAMINOPHEN [Concomitant]
     Active Substance: ACETAMINOPHEN
     Dosage: 1000 MG, 1X
     Dates: start: 20230524, end: 20230524
  135. ACETAMINOPHEN [Concomitant]
     Active Substance: ACETAMINOPHEN
     Dosage: 1000 MG, 1X
     Dates: start: 20230607, end: 20230607
  136. ACETAMINOPHEN [Concomitant]
     Active Substance: ACETAMINOPHEN
     Dosage: 1000 MG(TWICE PER CYCLE)
     Dates: start: 20230621, end: 20230705
  137. ACETAMINOPHEN [Concomitant]
     Active Substance: ACETAMINOPHEN
     Dosage: 1000 MG, 1X
     Dates: start: 20230726, end: 20230726
  138. ACETAMINOPHEN [Concomitant]
     Active Substance: ACETAMINOPHEN
     Dosage: UNK UNK, QCY
     Dates: start: 20230123, end: 20230123
  139. ACETAMINOPHEN [Concomitant]
     Active Substance: ACETAMINOPHEN
     Dosage: UNK UNK, QCY
     Dates: start: 20230220, end: 20230220
  140. ACETAMINOPHEN [Concomitant]
     Active Substance: ACETAMINOPHEN
     Dosage: UNK UNK, QCY
     Dates: start: 20230412, end: 20230412
  141. ACETAMINOPHEN [Concomitant]
     Active Substance: ACETAMINOPHEN
     Dosage: UNK
     Dates: start: 20221102, end: 20221102
  142. MONTELUKAST [Concomitant]
     Active Substance: MONTELUKAST
     Dosage: 10 MG, QD
     Dates: start: 20221012, end: 20221012
  143. MONTELUKAST [Concomitant]
     Active Substance: MONTELUKAST
     Dosage: UNK
     Dates: start: 20221102, end: 20221102
  144. DEXAMETHASONE [Concomitant]
     Active Substance: DEXAMETHASONE
     Indication: Supportive care
     Dosage: UNK UNK, QCY
     Dates: start: 20230206, end: 20230206
  145. DEXAMETHASONE [Concomitant]
     Active Substance: DEXAMETHASONE
     Dosage: UNK UNK, QCY
     Dates: start: 20230220, end: 20230220
  146. DEXAMETHASONE [Concomitant]
     Active Substance: DEXAMETHASONE
     Dosage: UNK UNK, QCY
     Dates: start: 20230306, end: 20230306
  147. DEXAMETHASONE [Concomitant]
     Active Substance: DEXAMETHASONE
     Dosage: UNK UNK, QCY
     Dates: start: 20230320, end: 20230320
  148. DEXAMETHASONE [Concomitant]
     Active Substance: DEXAMETHASONE
     Dosage: UNK UNK, QCY
     Dates: start: 20230412, end: 20230412
  149. DEXAMETHASONE [Concomitant]
     Active Substance: DEXAMETHASONE
     Dosage: UNK
     Dates: start: 20221026, end: 20221026
  150. DEXAMETHASONE [Concomitant]
     Active Substance: DEXAMETHASONE
     Dosage: UNK
     Dates: start: 20221102, end: 20221102
  151. ONDANSETRON [Concomitant]
     Active Substance: ONDANSETRON
     Indication: Prophylaxis
     Dosage: UNK (EVERY CYCLE)
     Dates: start: 2020
  152. FLUCONAZOLE [Concomitant]
     Active Substance: FLUCONAZOLE
     Indication: Infection prophylaxis
     Dosage: UNK
     Dates: start: 2020
  153. PAMIDRONATE [Concomitant]
     Active Substance: PAMIDRONATE DISODIUM
     Dosage: 30 MG, QD
     Dates: start: 20230503, end: 20230503

REACTIONS (7)
  - Haemorrhage intracranial [Recovered/Resolved with Sequelae]
  - Respiratory tract infection viral [Recovered/Resolved]
  - Bacterial diarrhoea [Recovered/Resolved with Sequelae]
  - Lower respiratory tract infection [Recovered/Resolved]
  - Neutropenia [Recovered/Resolved]
  - Muscle spasms [Unknown]
  - Peripheral swelling [Unknown]

NARRATIVE: CASE EVENT DATE: 20221107
